FAERS Safety Report 9092548 (Version 1)
Quarter: 2013Q1

REPORT INFORMATION
  Report Type: Spontaneous
  Country: US (occurrence: US)
  Receive Date: 20130218
  Receipt Date: 20130218
  Transmission Date: 20140127
  Serious: No
  Sender: FDA-Public Use
  Company Number: US-ABBOTT-12P-163-0997074-00

PATIENT
  Sex: Female
  Weight: 68.1 kg

DRUGS (6)
  1. SIMCOR 500/40 [Suspect]
     Indication: BLOOD CHOLESTEROL INCREASED
     Dosage: 500/40MG
     Dates: start: 201209
  2. ASPIRIN [Suspect]
     Indication: FLUSHING
  3. ASPIRIN [Suspect]
     Indication: PROPHYLAXIS
  4. LISINOPRIL [Concomitant]
     Indication: HYPERTENSION
  5. OMEPRAZOLE [Concomitant]
     Indication: GASTROOESOPHAGEAL REFLUX DISEASE
  6. SYNTHROID [Concomitant]
     Indication: THYROID CANCER

REACTIONS (3)
  - Abdominal pain upper [Not Recovered/Not Resolved]
  - Flushing [Not Recovered/Not Resolved]
  - Headache [Not Recovered/Not Resolved]
